FAERS Safety Report 10815712 (Version 1)
Quarter: 2015Q1

REPORT INFORMATION
  Report Type: Report from Study
  Country: US (occurrence: US)
  Receive Date: 20150218
  Receipt Date: 20150218
  Transmission Date: 20150721
  Serious: Yes (Hospitalization, Other)
  Sender: FDA-Public Use
  Company Number: US-ABBVIE-14K-163-1283632-00

PATIENT
  Sex: Female
  Weight: 50.85 kg

DRUGS (6)
  1. HUMIRA [Suspect]
     Active Substance: ADALIMUMAB
     Dates: start: 201407
  2. METHOTREXATE [Concomitant]
     Active Substance: METHOTREXATE
     Indication: RHEUMATOID ARTHRITIS
     Route: 048
  3. OXYCONTIN [Concomitant]
     Active Substance: OXYCODONE HYDROCHLORIDE
     Indication: ARTHRALGIA
     Route: 048
  4. OXYCODONE [Concomitant]
     Active Substance: OXYCODONE
     Indication: ARTHRALGIA
     Route: 048
  5. HUMIRA [Suspect]
     Active Substance: ADALIMUMAB
     Indication: RHEUMATOID ARTHRITIS
     Dates: start: 20100608
  6. IBUPROFEN. [Concomitant]
     Active Substance: IBUPROFEN
     Indication: PAIN

REACTIONS (14)
  - Knee arthroplasty [Unknown]
  - Cardiac pacemaker insertion [Unknown]
  - Hip arthroplasty [Unknown]
  - Scar [Unknown]
  - Inappropriate schedule of drug administration [Unknown]
  - Hip arthroplasty [Unknown]
  - Surgery [Not Recovered/Not Resolved]
  - Injection site bruising [Unknown]
  - Injection site vesicles [Unknown]
  - Injection site pain [Recovered/Resolved]
  - Drug dispensing error [Unknown]
  - Injection site pain [Unknown]
  - Injection site haematoma [Unknown]
  - Rheumatoid arthritis [Unknown]

NARRATIVE: CASE EVENT DATE: 2011
